FAERS Safety Report 4546193-7 (Version None)
Quarter: 2005Q1

REPORT INFORMATION
  Report Type: 
  Country: None (occurrence: None)
  Receive Date: 20050103
  Receipt Date: 20041223
  Transmission Date: 20050727
  Serious: Yes (Disabling)
  Sender: FDA-Public Use
  Company Number: 2004AP06470

PATIENT
  Age: 52 Year
  Sex: Male

DRUGS (3)
  1. IRESSA [Suspect]
     Indication: NEOPLASM MALIGNANT
     Dosage: 250 MG DAILY PO
     Route: 048
     Dates: start: 20031208, end: 20040412
  2. CISPLATIN [Suspect]
     Indication: NEOPLASM MALIGNANT
     Dates: start: 20031209, end: 20041229
  3. RADIOTHERAPY [Suspect]
     Indication: NEOPLASM MALIGNANT

REACTIONS (1)
  - STOMATITIS NECROTISING [None]
